FAERS Safety Report 18227890 (Version 1)
Quarter: 2020Q3

REPORT INFORMATION
  Report Type: Spontaneous
  Country: US (occurrence: US)
  Receive Date: 20200903
  Receipt Date: 20200903
  Transmission Date: 20201103
  Serious: No
  Sender: FDA-Public Use
  Company Number: None

PATIENT
  Age: 67 Year
  Sex: Male
  Weight: 81.9 kg

DRUGS (1)
  1. DEXAMETHASONE 1.5MG [Suspect]
     Active Substance: DEXAMETHASONE
     Indication: NERVE COMPRESSION
     Route: 048
     Dates: start: 20200827, end: 20200830

REACTIONS (3)
  - Hiccups [None]
  - Therapy interrupted [None]
  - Insomnia [None]

NARRATIVE: CASE EVENT DATE: 20200830
